FAERS Safety Report 17072336 (Version 1)
Quarter: 2019Q4

REPORT INFORMATION
  Report Type: Spontaneous
  Country: KR (occurrence: KR)
  Receive Date: 20191125
  Receipt Date: 20191125
  Transmission Date: 20200122
  Serious: Yes (Other)
  Sender: FDA-Public Use
  Company Number: KR-BIOCRYST PHARMACEUTICALS, INC.-2019BCR00237

PATIENT

DRUGS (1)
  1. PERAMIFLU [Suspect]
     Active Substance: PERAMIVIR
     Indication: INFLUENZA
     Dosage: UNK
     Route: 065
     Dates: start: 201911

REACTIONS (1)
  - Endocarditis [Unknown]
